FAERS Safety Report 25645840 (Version 1)
Quarter: 2025Q3

REPORT INFORMATION
  Report Type: Spontaneous
  Country: US (occurrence: US)
  Receive Date: 20250805
  Receipt Date: 20250805
  Transmission Date: 20251020
  Serious: Yes (Life-Threatening, Hospitalization)
  Sender: NOVARTIS
  Company Number: US-002147023-NVSC2025US123334

PATIENT
  Age: 55 Year
  Sex: Male

DRUGS (7)
  1. IMATINIB [Suspect]
     Active Substance: IMATINIB
     Indication: Pulmonary veno-occlusive disease
     Route: 065
  2. IMATINIB [Suspect]
     Active Substance: IMATINIB
     Indication: Scleroderma
  3. AMBRISENTAN [Suspect]
     Active Substance: AMBRISENTAN
     Indication: Pulmonary hypertension
     Route: 065
  4. VELETRI [Suspect]
     Active Substance: EPOPROSTENOL
     Indication: Pulmonary hypertension
     Route: 055
  5. NITRIC OXIDE [Suspect]
     Active Substance: NITRIC OXIDE
     Indication: Respiratory failure
     Route: 055
  6. REMODULIN [Suspect]
     Active Substance: TREPROSTINIL
     Indication: Respiratory failure
     Route: 058
  7. REMODULIN [Suspect]
     Active Substance: TREPROSTINIL
     Indication: Pulmonary hypertension
     Route: 042

REACTIONS (1)
  - Drug ineffective [Unknown]
